FAERS Safety Report 20176109 (Version 1)
Quarter: 2021Q4

REPORT INFORMATION
  Report Type: Spontaneous
  Country: US (occurrence: None)
  Receive Date: 20211210
  Receipt Date: 20211210
  Transmission Date: 20220303
  Serious: Yes (Hospitalization)
  Sender: FDA-Public Use
  Company Number: None

PATIENT
  Age: 71 Year
  Sex: Female

DRUGS (1)
  1. ZOLEDRONIC ACID [Suspect]
     Active Substance: ZOLEDRONIC ACID
     Indication: Osteoporosis
     Dosage: OTHER FREQUENCY : ONCE A YEAR;?
     Route: 042
     Dates: start: 20201210, end: 20210212

REACTIONS (2)
  - Drug ineffective [None]
  - Intracardiac thrombus [None]

NARRATIVE: CASE EVENT DATE: 20210212
